FAERS Safety Report 22599494 (Version 1)
Quarter: 2023Q2

REPORT INFORMATION
  Report Type: Spontaneous
  Country: ES (occurrence: ES)
  Receive Date: 20230614
  Receipt Date: 20230614
  Transmission Date: 20230722
  Serious: Yes (Other)
  Sender: FDA-Public Use
  Company Number: ES-MYLANLABS-2023M1062280

PATIENT
  Age: 72 Year
  Sex: Female

DRUGS (7)
  1. EVEROLIMUS [Interacting]
     Active Substance: EVEROLIMUS
     Indication: Renal cancer
     Dosage: 10 MILLIGRAM, QD (ADMINISTERED IN FASTING CONDITION PRIOR TO BREAKFAST)
     Route: 065
     Dates: start: 202203
  2. EVEROLIMUS [Interacting]
     Active Substance: EVEROLIMUS
     Indication: Lung adenocarcinoma
     Dosage: 15 MILLIGRAM, QD (ADMINISTERED 10 MG PRIOR TO BREAKFAST AND 5 MG BEFORE DINNER)
     Route: 065
  3. EVEROLIMUS [Interacting]
     Active Substance: EVEROLIMUS
     Dosage: 10 MILLIGRAM, BID (ADMINISTERED BEFORE MEALS)
     Route: 065
  4. PHENYTOIN [Interacting]
     Active Substance: PHENYTOIN
     Indication: Epilepsy
     Dosage: UNK
     Route: 065
  5. CARBAMAZEPINE [Interacting]
     Active Substance: CARBAMAZEPINE
     Indication: Epilepsy
     Dosage: UNK
     Route: 065
  6. ACETAMINOPHEN [Concomitant]
     Active Substance: ACETAMINOPHEN
     Indication: Product used for unknown indication
     Dosage: UNK
     Route: 065
  7. TRAMADOL [Concomitant]
     Active Substance: TRAMADOL
     Indication: Product used for unknown indication
     Dosage: UNK
     Route: 065

REACTIONS (2)
  - Drug level decreased [Unknown]
  - Drug interaction [Unknown]
